FAERS Safety Report 7931470-X (Version None)
Quarter: 2011Q4

REPORT INFORMATION
  Report Type: 
  Country: None (occurrence: None)
  Receive Date: 20111121
  Receipt Date: 20111114
  Transmission Date: 20120403
  Serious: Yes (Hospitalization, Other)
  Sender: FDA-Public Use
  Company Number: KW-ABBOTT-11P-091-0874469-00

PATIENT
  Age: 34 Year
  Sex: Male

DRUGS (7)
  1. ANTI-THYMOCYTE GLOBULIN NOS [Concomitant]
     Indication: IMMUNOSUPPRESSANT DRUG THERAPY
  2. MYCOPHENOLATE MOFETIL [Concomitant]
     Indication: IMMUNOSUPPRESSANT DRUG THERAPY
  3. COLCHICINE [Suspect]
  4. CYCLOSPORINE [Suspect]
     Indication: IMMUNOSUPPRESSANT DRUG THERAPY
  5. COLCHICINE [Suspect]
  6. PREDNISOLONE [Concomitant]
     Indication: IMMUNOSUPPRESSANT DRUG THERAPY
     Dosage: REDUCED GRADUALLY TO 5 MG DAILY
  7. COLCHICINE [Suspect]
     Indication: PRODUCT USED FOR UNKNOWN INDICATION

REACTIONS (3)
  - MYOPATHY TOXIC [None]
  - FAMILIAL MEDITERRANEAN FEVER [None]
  - AMYLOIDOSIS [None]
